FAERS Safety Report 8232982-4 (Version None)
Quarter: 2012Q1

REPORT INFORMATION
  Report Type: 
  Country: None (occurrence: None)
  Receive Date: 20120326
  Receipt Date: 20120319
  Transmission Date: 20120608
  Serious: Yes (Death, Life-Threatening, Hospitalization)
  Sender: FDA-Public Use
  Company Number: CZ-AMGEN-CZESP2012017712

PATIENT
  Age: 56 Year
  Sex: Female

DRUGS (22)
  1. RITUXIMAB [Suspect]
     Indication: DIFFUSE LARGE B-CELL LYMPHOMA
     Dosage: 580 MG, UNK
     Route: 042
     Dates: start: 20111109
  2. PREDNISONE TAB [Suspect]
     Indication: DIFFUSE LARGE B-CELL LYMPHOMA
     Dosage: 90 MG, UNK
     Route: 048
     Dates: start: 20111110
  3. BERODUAL [Concomitant]
     Dosage: 0.5 ML, TID
     Dates: start: 20111216, end: 20111222
  4. CYCLOPHOSPHAMIDE [Concomitant]
     Dosage: 1650 MG, UNK
     Route: 042
     Dates: start: 20111129, end: 20111129
  5. MUCOSOLVAN [Concomitant]
     Dosage: 1 ML, TID
     Dates: start: 20111216, end: 20111222
  6. DOXORUBICIN HCL [Concomitant]
     Dosage: 116 MG, UNK
     Route: 042
     Dates: start: 20111129, end: 20111129
  7. OXICONAZOLE NITRATE [Concomitant]
     Dosage: 1 DF, BID
     Route: 061
     Dates: start: 20111209, end: 20111217
  8. VINCRISTINE [Concomitant]
     Dosage: 2 MG, UNK
     Route: 042
     Dates: start: 20111129, end: 20111129
  9. RITUXIMAB [Suspect]
     Dosage: 580 MG, UNK
     Route: 042
     Dates: start: 20111129, end: 20111129
  10. CYCLOPHOSPHAMIDE [Suspect]
     Indication: DIFFUSE LARGE B-CELL LYMPHOMA
     Dosage: 3100 MG, UNK
     Route: 042
     Dates: start: 20111110
  11. VINCRISTINE [Suspect]
     Indication: DIFFUSE LARGE B-CELL LYMPHOMA
     Dosage: 2 MG, UNK
     Route: 042
     Dates: start: 20111110
  12. BATRAFEN                           /00619302/ [Concomitant]
     Dosage: 1 DF, BID
     Route: 061
     Dates: start: 20111209, end: 20111217
  13. TRANSMETIL                         /00882301/ [Concomitant]
     Dosage: 500 UNK, Q8H
     Route: 042
     Dates: start: 20111221, end: 20111222
  14. HELICID                            /00661201/ [Concomitant]
     Dosage: 40 MG, UNK
     Route: 042
     Dates: start: 20111020, end: 20111211
  15. OMEPRAZOLE [Concomitant]
     Dosage: 20 MG, BID
     Dates: start: 20111013
  16. PREDNISONE TAB [Concomitant]
     Dosage: 90 MG, UNK
     Route: 048
     Dates: start: 20111129, end: 20111203
  17. NEUPOGEN [Concomitant]
     Dosage: 600 MUG, UNK
     Route: 058
     Dates: start: 20111201, end: 20111222
  18. PEGFILGRASTIM [Suspect]
     Indication: CHEMOTHERAPY
     Dosage: 6 MG, UNK
     Route: 058
     Dates: start: 20111110
  19. DOXORUBICIN HCL [Suspect]
     Indication: DIFFUSE LARGE B-CELL LYMPHOMA
     Dosage: 116 MG, UNK
     Route: 042
     Dates: start: 20111110
  20. URSOSAN [Concomitant]
     Dosage: 2 DF, Q8H
     Route: 048
     Dates: start: 20111221, end: 20111222
  21. TRANSMETIL                         /00882301/ [Concomitant]
     Dosage: 500 MG, UNK
     Route: 042
     Dates: start: 20111206, end: 20111218
  22. URSODIOL [Concomitant]
     Dosage: 250 MG, BID
     Dates: start: 20020615

REACTIONS (6)
  - MULTI-ORGAN FAILURE [None]
  - SEPTIC SHOCK [None]
  - MUCOSAL INFLAMMATION [None]
  - STOMATITIS [None]
  - FEBRILE NEUTROPENIA [None]
  - ACUTE RESPIRATORY FAILURE [None]
